FAERS Safety Report 13979578 (Version 2)
Quarter: 2018Q3

REPORT INFORMATION
  Report Type: Spontaneous
  Country: US (occurrence: US)
  Receive Date: 20170914
  Receipt Date: 20180913
  Transmission Date: 20181010
  Serious: Yes (Other)
  Sender: FDA-Public Use
  Company Number: US-ASTELLAS-2017US025198

PATIENT
  Age: 82 Year
  Sex: Male

DRUGS (1)
  1. XTANDI [Suspect]
     Active Substance: ENZALUTAMIDE
     Indication: PROSTATE CANCER
     Route: 048
     Dates: start: 20170129

REACTIONS (10)
  - Dyspnoea [Not Recovered/Not Resolved]
  - Asthenopia [Not Recovered/Not Resolved]
  - Muscle strain [Unknown]
  - Fluid retention [Not Recovered/Not Resolved]
  - Spinal fracture [Not Recovered/Not Resolved]
  - Eye irritation [Not Recovered/Not Resolved]
  - International normalised ratio abnormal [Unknown]
  - Memory impairment [Not Recovered/Not Resolved]
  - Peripheral swelling [Not Recovered/Not Resolved]
  - Fatigue [Not Recovered/Not Resolved]

NARRATIVE: CASE EVENT DATE: 20170623
